FAERS Safety Report 9053669 (Version 1)
Quarter: 2013Q1

REPORT INFORMATION
  Report Type: Spontaneous
  Country: US (occurrence: None)
  Receive Date: 20130201
  Receipt Date: 20130201
  Transmission Date: 20140127
  Serious: Yes (Other)
  Sender: FDA-Public Use
  Company Number: None

PATIENT
  Age: 76 Year
  Sex: Female
  Weight: 60.78 kg

DRUGS (1)
  1. LISINOPRIL TABS 20MG TABS TOOK 1 1/2 SANDOZ [Suspect]
     Indication: BLOOD PRESSURE INCREASED
     Route: 048
     Dates: start: 20130116, end: 20130119

REACTIONS (1)
  - Suicidal ideation [None]
